FAERS Safety Report 8063939-4 (Version None)
Quarter: 2012Q1

REPORT INFORMATION
  Report Type: 
  Country: None (occurrence: None)
  Receive Date: 20120123
  Receipt Date: 20120110
  Transmission Date: 20120608
  Serious: Yes (Other)
  Sender: FDA-Public Use
  Company Number: US-ELI_LILLY_AND_COMPANY-US201201003138

PATIENT
  Sex: Male
  Weight: 98.866 kg

DRUGS (13)
  1. DELTACORTRIL [Concomitant]
     Indication: HYPOPITUITARISM
     Dosage: UNK
     Dates: start: 20020520
  2. ASPIRIN [Concomitant]
     Indication: CARDIAC DISORDER
     Dosage: UNK
     Dates: start: 20060811
  3. PLAVIX [Concomitant]
     Indication: CARDIAC DISORDER
     Dosage: UNK
     Dates: start: 20060811
  4. SPIRIVA [Concomitant]
     Indication: ASTHMA
     Dosage: UNK
     Dates: start: 20060811
  5. ADVAIR DISKUS 100/50 [Concomitant]
     Indication: ASTHMA
     Dosage: UNK
     Dates: start: 20060811
  6. TESTOSTERONE CYPIONATE [Concomitant]
     Indication: HYPOPITUITARISM
     Dosage: UNK
     Dates: start: 20020520
  7. VICODIN [Concomitant]
     Indication: PAIN
     Dosage: UNK
     Dates: start: 20020222
  8. SOMATROPIN [Suspect]
     Indication: HYPOPITUITARISM
     Dosage: 0.6 MG, QD
     Dates: start: 20080106, end: 20111223
  9. THYROID TAB [Concomitant]
     Indication: HYPOPITUITARISM
     Dosage: UNK
     Dates: start: 20020520
  10. VASOTEC [Concomitant]
     Indication: HYPERTENSION
     Dosage: UNK
  11. SINGULAIR [Concomitant]
     Indication: ASTHMA
     Dosage: UNK
     Dates: start: 20071207
  12. AMBIEN [Concomitant]
     Indication: SLEEP DISORDER
     Dosage: UNK
     Dates: start: 20020220
  13. VYTORIN [Concomitant]
     Indication: BLOOD CHOLESTEROL
     Dosage: UNK
     Dates: start: 20081121

REACTIONS (2)
  - GASTROINTESTINAL HAEMORRHAGE [None]
  - COLON CANCER [None]
